FAERS Safety Report 19478229 (Version 1)
Quarter: 2021Q2

REPORT INFORMATION
  Report Type: Spontaneous
  Country: CN (occurrence: CN)
  Receive Date: 20210630
  Receipt Date: 20210630
  Transmission Date: 20210717
  Serious: Yes (Disabling)
  Sender: FDA-Public Use
  Company Number: CN-PFIZER INC-2021727414

PATIENT
  Age: 27 Year
  Sex: Male
  Weight: 61.8 kg

DRUGS (1)
  1. MEDROL [Suspect]
     Active Substance: METHYLPREDNISOLONE
     Indication: NEPHROTIC SYNDROME
     Dosage: 4.000 MG, 1X/DAY
     Route: 048
     Dates: start: 20210208, end: 20210615

REACTIONS (2)
  - Vision blurred [Unknown]
  - Cataract subcapsular [Unknown]

NARRATIVE: CASE EVENT DATE: 20210601
